FAERS Safety Report 4867173-8 (Version None)
Quarter: 2005Q4

REPORT INFORMATION
  Report Type: 
  Country: None (occurrence: None)
  Receive Date: 20051222
  Receipt Date: 20051214
  Transmission Date: 20060501
  Serious: Yes (Other)
  Sender: FDA-Public Use
  Company Number: 2005169120

PATIENT
  Age: 80 Year

DRUGS (1)
  1. GEODON [Suspect]
     Indication: AGITATION

REACTIONS (1)
  - CARDIAC PACEMAKER INSERTION [None]
